FAERS Safety Report 5705885-4 (Version None)
Quarter: 2008Q2

REPORT INFORMATION
  Report Type: 
  Country: None (occurrence: None)
  Receive Date: 20080411
  Receipt Date: 20080331
  Transmission Date: 20081010
  Serious: Yes (Life-Threatening, Hospitalization)
  Sender: FDA-Public Use
  Company Number: 2008SP001971

PATIENT
  Age: 72 Year
  Sex: Female
  Weight: 81 kg

DRUGS (10)
  1. INTEGRILIN [Suspect]
     Indication: STENT PLACEMENT
     Dosage: 14.6 MG; ONCE; INBO,; INDRP
     Dates: start: 20080124, end: 20080124
  2. INTEGRILIN [Suspect]
     Indication: STENT PLACEMENT
     Dosage: 14.6 MG; ONCE; INBO,; INDRP
     Dates: start: 20080124, end: 20080124
  3. TENECTEPLASE [Suspect]
     Indication: ACUTE MYOCARDIAL INFARCTION
     Dosage: 40 MG; ONCE; IV
     Route: 042
     Dates: start: 20080123
  4. LOVENOX [Suspect]
     Indication: ACUTE MYOCARDIAL INFARCTION
     Dosage: 80 MG; ONCE; SC
     Route: 058
     Dates: start: 20080123
  5. ASPIRIN [Suspect]
     Indication: ACUTE MYOCARDIAL INFARCTION
     Dosage: 162 MG; ONCE;
     Dates: start: 20080123
  6. LOVASTATIN [Concomitant]
  7. ACTOS [Concomitant]
  8. NITROGLYCERIN [Concomitant]
  9. MORPHINE [Concomitant]
  10. LOPRESSOR [Concomitant]

REACTIONS (10)
  - ATELECTASIS [None]
  - GINGIVAL BLEEDING [None]
  - HAEMATEMESIS [None]
  - HYPOTENSION [None]
  - OBSTRUCTIVE AIRWAYS DISORDER [None]
  - PLEURAL EFFUSION [None]
  - PULMONARY ALVEOLAR HAEMORRHAGE [None]
  - PULMONARY HAEMORRHAGE [None]
  - PULMONARY THROMBOSIS [None]
  - RESPIRATORY DISTRESS [None]
